FAERS Safety Report 9391604 (Version 2)
Quarter: 2013Q3

REPORT INFORMATION
  Report Type: Spontaneous
  Country: AU (occurrence: AU)
  Receive Date: 20130709
  Receipt Date: 20130801
  Transmission Date: 20140515
  Serious: Yes (Other)
  Sender: FDA-Public Use
  Company Number: AU-ASTRAZENECA-2011SE75137

PATIENT
  Age: 66 Year
  Sex: Female

DRUGS (1)
  1. ARIMIDEX [Suspect]
     Route: 048
     Dates: start: 20111201

REACTIONS (9)
  - Skin cancer [Recovered/Resolved]
  - Depressed mood [Unknown]
  - Tearfulness [Not Recovered/Not Resolved]
  - Pain [Not Recovered/Not Resolved]
  - Vertigo [Not Recovered/Not Resolved]
  - Dizziness [Unknown]
  - Ear discomfort [Unknown]
  - Arthralgia [Not Recovered/Not Resolved]
  - Hot flush [Recovering/Resolving]
